FAERS Safety Report 6812099-3 (Version None)
Quarter: 2010Q3

REPORT INFORMATION
  Report Type: 
  Country: None (occurrence: None)
  Receive Date: 20100701
  Receipt Date: 20100625
  Transmission Date: 20110219
  Serious: Yes (Life-Threatening, Hospitalization, Other)
  Sender: FDA-Public Use
  Company Number: HQWYE022412AUG03

PATIENT
  Sex: Female

DRUGS (2)
  1. PREMPRO [Suspect]
     Dosage: UNSPECIFIED DOSE DAILY
     Route: 048
     Dates: end: 20020101
  2. CONJUGATED ESTROGENS [Suspect]

REACTIONS (3)
  - BREAST CANCER RECURRENT [None]
  - DEPRESSION [None]
  - FATIGUE [None]
